FAERS Safety Report 4899120-7 (Version None)
Quarter: 2006Q1

REPORT INFORMATION
  Report Type: 
  Country: None (occurrence: None)
  Receive Date: 20060202
  Receipt Date: 20050407
  Transmission Date: 20060701
  Serious: Yes (Other)
  Sender: FDA-Public Use
  Company Number: US-AVENTIS-200512913US

PATIENT
  Age: 46 Year
  Sex: Male

DRUGS (2)
  1. KETEK [Suspect]
     Indication: EAR INFECTION
     Dosage: DOSE: UNK
  2. KETEK [Suspect]
     Indication: SINUSITIS
     Dosage: DOSE: UNK

REACTIONS (16)
  - ALANINE AMINOTRANSFERASE INCREASED [None]
  - ANOREXIA [None]
  - ASPARTATE AMINOTRANSFERASE INCREASED [None]
  - BILIRUBIN CONJUGATED INCREASED [None]
  - BILIRUBINURIA [None]
  - BLOOD ALKALINE PHOSPHATASE INCREASED [None]
  - BLOOD BILIRUBIN INCREASED [None]
  - CHROMATURIA [None]
  - FATIGUE [None]
  - HEPATITIS [None]
  - HEPATOCELLULAR DAMAGE [None]
  - INFLUENZA [None]
  - JAUNDICE [None]
  - MALAISE [None]
  - PRURITUS [None]
  - RASH [None]
